FAERS Safety Report 9890873 (Version 4)
Quarter: 2015Q3

REPORT INFORMATION
  Report Type: Spontaneous
  Country: US (occurrence: US)
  Receive Date: 20140212
  Receipt Date: 20150708
  Transmission Date: 20151125
  Serious: Yes (Other)
  Sender: FDA-Public Use
  Company Number: US-BAYER-2014-021835

PATIENT
  Age: 89 Year
  Sex: Female
  Weight: 79 kg

DRUGS (1)
  1. ALEVE [Suspect]
     Active Substance: NAPROXEN SODIUM
     Indication: ARTHRITIS
     Dosage: 1 DF, QD
     Route: 048
     Dates: start: 201312

REACTIONS (7)
  - Restless legs syndrome [Unknown]
  - Incorrect drug administration duration [Unknown]
  - Drug ineffective [Unknown]
  - Gastrointestinal disorder [None]
  - Product use issue [None]
  - Ear pain [None]
  - Cardiac pacemaker insertion [Unknown]

NARRATIVE: CASE EVENT DATE: 201312
